FAERS Safety Report 19988305 (Version 1)
Quarter: 2021Q4

REPORT INFORMATION
  Report Type: Spontaneous
  Country: DE (occurrence: DE)
  Receive Date: 20211022
  Receipt Date: 20211022
  Transmission Date: 20220303
  Serious: Yes (Hospitalization, Other)
  Sender: FDA-Public Use
  Company Number: DE-SA-2021SA348221

PATIENT
  Age: 59 Year
  Sex: Female
  Weight: 104.7 kg

DRUGS (3)
  1. LEFLUNOMIDE [Suspect]
     Active Substance: LEFLUNOMIDE
     Indication: Pulmonary sarcoidosis
     Dosage: 20 MG, QD
  2. PREDNISOLONE [Suspect]
     Active Substance: PREDNISOLONE
     Indication: Pulmonary sarcoidosis
     Dosage: 7.5 MG
  3. TACROLIMUS [Suspect]
     Active Substance: TACROLIMUS
     Indication: Pulmonary sarcoidosis
     Dosage: 1 MG, QD

REACTIONS (10)
  - Melkersson-Rosenthal syndrome [Recovered/Resolved]
  - Gingivitis [Recovered/Resolved]
  - Lip swelling [Recovered/Resolved]
  - Gingival swelling [Recovered/Resolved]
  - Plicated tongue [Recovered/Resolved]
  - Swelling face [Recovered/Resolved]
  - Facial paresis [Recovered/Resolved]
  - Facial paralysis [Recovered/Resolved]
  - Parotid gland enlargement [Recovered/Resolved]
  - Granuloma [Recovered/Resolved]
